FAERS Safety Report 5699218-X (Version None)
Quarter: 2008Q2

REPORT INFORMATION
  Report Type: 
  Country: None (occurrence: None)
  Receive Date: 20080408
  Receipt Date: 20080328
  Transmission Date: 20081010
  Serious: No
  Sender: FDA-Public Use
  Company Number: APP200800242

PATIENT
  Age: 21 Year
  Sex: Male
  Weight: 45.3597 kg

DRUGS (1)
  1. HEPARIN SODIUM INJECTION [Suspect]
     Indication: SURGERY
     Dosage: 1000 USP UNITS
     Dates: start: 20080310, end: 20080314

REACTIONS (1)
  - DRUG INEFFECTIVE [None]
